FAERS Safety Report 21558437 (Version 4)
Quarter: 2023Q4

REPORT INFORMATION
  Report Type: Spontaneous
  Country: CA (occurrence: None)
  Receive Date: 20221107
  Receipt Date: 20231117
  Transmission Date: 20240110
  Serious: Yes (Hospitalization, Other)
  Sender: FDA-Public Use
  Company Number: 2022A356235

PATIENT
  Age: 52 Year
  Sex: Female

DRUGS (85)
  1. ACLIDINIUM BROMIDE\FORMOTEROL FUMARATE [Suspect]
     Active Substance: ACLIDINIUM BROMIDE\FORMOTEROL FUMARATE
     Indication: Product used for unknown indication
  2. BUDESONIDE\FORMOTEROL FUMARATE [Suspect]
     Active Substance: BUDESONIDE\FORMOTEROL FUMARATE
     Indication: Product used for unknown indication
  3. ACLIDINIUM BROMIDE [Suspect]
     Active Substance: ACLIDINIUM BROMIDE
  4. QUETIAPINE [Suspect]
     Active Substance: QUETIAPINE
     Indication: Psychotic disorder
     Route: 048
  5. QUETIAPINE [Suspect]
     Active Substance: QUETIAPINE
     Indication: Psychotic disorder
     Route: 048
  6. OMNARIS [Suspect]
     Active Substance: CICLESONIDE
     Indication: Product used for unknown indication
     Route: 055
  7. OMNARIS [Suspect]
     Active Substance: CICLESONIDE
     Indication: Seasonal allergy
     Route: 055
  8. OMNARIS [Suspect]
     Active Substance: CICLESONIDE
     Indication: Rhinitis allergic
     Route: 055
  9. OMNARIS [Suspect]
     Active Substance: CICLESONIDE
     Indication: Product used for unknown indication
  10. OMNARIS [Suspect]
     Active Substance: CICLESONIDE
     Indication: Seasonal allergy
  11. OMNARIS [Suspect]
     Active Substance: CICLESONIDE
     Indication: Rhinitis allergic
  12. ACLIDINIUM BROMIDE [Suspect]
     Active Substance: ACLIDINIUM BROMIDE
     Indication: Chronic obstructive pulmonary disease
  13. ACLIDINIUM BROMIDE [Suspect]
     Active Substance: ACLIDINIUM BROMIDE
     Indication: Product used for unknown indication
  14. ACLIDINIUM BROMIDE [Suspect]
     Active Substance: ACLIDINIUM BROMIDE
     Indication: Chronic obstructive pulmonary disease
  15. ACLIDINIUM BROMIDE [Suspect]
     Active Substance: ACLIDINIUM BROMIDE
     Indication: Product used for unknown indication
  16. ACETAMINOPHEN [Suspect]
     Active Substance: ACETAMINOPHEN
     Indication: Product used for unknown indication
     Route: 048
  17. ANORO ELLIPTA [Suspect]
     Active Substance: UMECLIDINIUM BROMIDE\VILANTEROL TRIFENATATE
     Indication: Product used for unknown indication
  18. APTIVUS [Suspect]
     Active Substance: TIPRANAVIR
     Indication: HIV infection
     Route: 048
  19. ATROVENT [Suspect]
     Active Substance: IPRATROPIUM BROMIDE
  20. AZITHROMYCIN [Suspect]
     Active Substance: AZITHROMYCIN
     Indication: Product used for unknown indication
  21. BREO ELLIPTA [Suspect]
     Active Substance: FLUTICASONE FUROATE\VILANTEROL TRIFENATATE
     Indication: Product used for unknown indication
  22. CIPROFLOXACIN HYDROCHLORIDE [Suspect]
     Active Substance: CIPROFLOXACIN HYDROCHLORIDE
     Indication: Product used for unknown indication
  23. CLONAZEPAM [Suspect]
     Active Substance: CLONAZEPAM
     Indication: Hypomania
     Route: 048
  24. DIAZEPAM [Suspect]
     Active Substance: DIAZEPAM
     Indication: Depression
     Route: 048
  25. DIAZEPAM [Suspect]
     Active Substance: DIAZEPAM
     Indication: Product used for unknown indication
     Route: 048
  26. DIAZEPAM [Suspect]
     Active Substance: DIAZEPAM
     Indication: Depression
     Route: 048
  27. DIAZEPAM [Suspect]
     Active Substance: DIAZEPAM
     Indication: Product used for unknown indication
     Route: 048
  28. DIAZEPAM [Suspect]
     Active Substance: DIAZEPAM
     Indication: Depression
  29. DIAZEPAM [Suspect]
     Active Substance: DIAZEPAM
     Indication: Product used for unknown indication
  30. EPIVAL [Suspect]
     Active Substance: DIVALPROEX SODIUM
     Indication: Product used for unknown indication
  31. EPIVAL [Suspect]
     Active Substance: DIVALPROEX SODIUM
     Indication: Depression
  32. EPIVAL [Suspect]
     Active Substance: DIVALPROEX SODIUM
     Indication: Product used for unknown indication
     Route: 048
  33. EPIVAL [Suspect]
     Active Substance: DIVALPROEX SODIUM
     Indication: Depression
     Route: 048
  34. EPIVAL [Suspect]
     Active Substance: DIVALPROEX SODIUM
     Indication: Product used for unknown indication
     Route: 048
  35. EPIVAL [Suspect]
     Active Substance: DIVALPROEX SODIUM
     Indication: Depression
     Route: 048
  36. EPIVAL [Suspect]
     Active Substance: DIVALPROEX SODIUM
     Indication: Product used for unknown indication
  37. EPIVAL [Suspect]
     Active Substance: DIVALPROEX SODIUM
     Indication: Depression
  38. GLYCOPYRROLATE [Suspect]
     Active Substance: GLYCOPYRROLATE
     Indication: Product used for unknown indication
  39. OLODATEROL HYDROCHLORIDE\TIOTROPIUM BROMIDE MONOHYDRATE [Suspect]
     Active Substance: OLODATEROL HYDROCHLORIDE\TIOTROPIUM BROMIDE MONOHYDRATE
  40. NASONEX [Suspect]
     Active Substance: MOMETASONE FUROATE
     Indication: Product used for unknown indication
     Route: 045
  41. OLANZAPINE [Suspect]
     Active Substance: OLANZAPINE
     Indication: Musculoskeletal stiffness
     Route: 048
  42. OLANZAPINE [Suspect]
     Active Substance: OLANZAPINE
     Indication: Musculoskeletal stiffness
     Route: 048
  43. PREDNISONE [Suspect]
     Active Substance: PREDNISONE
     Indication: Product used for unknown indication
  44. PROCYCLIDINE HYDROCHLORIDE [Suspect]
     Active Substance: PROCYCLIDINE HYDROCHLORIDE
     Indication: Product used for unknown indication
     Route: 048
  45. RISPERIDONE [Suspect]
     Active Substance: RISPERIDONE
     Indication: Psychotic disorder
     Route: 048
  46. ALBUTEROL [Suspect]
     Active Substance: ALBUTEROL
     Indication: Product used for unknown indication
  47. SINGULAIR [Suspect]
     Active Substance: MONTELUKAST SODIUM
     Indication: Product used for unknown indication
  48. KALETRA [Suspect]
     Active Substance: LOPINAVIR\RITONAVIR
     Indication: Product used for unknown indication
  49. KALETRA [Suspect]
     Active Substance: LOPINAVIR\RITONAVIR
     Indication: Depression
  50. KALETRA [Suspect]
     Active Substance: LOPINAVIR\RITONAVIR
     Indication: Product used for unknown indication
     Route: 048
  51. KALETRA [Suspect]
     Active Substance: LOPINAVIR\RITONAVIR
     Indication: Depression
     Route: 048
  52. KALETRA [Suspect]
     Active Substance: LOPINAVIR\RITONAVIR
     Indication: Product used for unknown indication
     Route: 048
  53. KALETRA [Suspect]
     Active Substance: LOPINAVIR\RITONAVIR
     Indication: Depression
     Route: 048
  54. KALETRA [Suspect]
     Active Substance: LOPINAVIR\RITONAVIR
     Indication: Product used for unknown indication
  55. KALETRA [Suspect]
     Active Substance: LOPINAVIR\RITONAVIR
     Indication: Depression
  56. KALETRA [Suspect]
     Active Substance: LOPINAVIR\RITONAVIR
     Indication: Product used for unknown indication
  57. KALETRA [Suspect]
     Active Substance: LOPINAVIR\RITONAVIR
     Indication: Depression
  58. SPIRIVA [Suspect]
     Active Substance: TIOTROPIUM BROMIDE MONOHYDRATE
     Indication: Product used for unknown indication
  59. TEGRETOL [Suspect]
     Active Substance: CARBAMAZEPINE
     Indication: Hypomania
  60. TEGRETOL [Suspect]
     Active Substance: CARBAMAZEPINE
     Indication: Hypomania
  61. TIPRANAVIR [Suspect]
     Active Substance: TIPRANAVIR
     Indication: Product used for unknown indication
     Route: 048
  62. TRAZODONE [Suspect]
     Active Substance: TRAZODONE HYDROCHLORIDE
     Indication: Depression
     Route: 048
  63. TRAZODONE [Suspect]
     Active Substance: TRAZODONE HYDROCHLORIDE
     Indication: Depression
     Route: 048
  64. GLYCOPYRRONIUM\INDACATEROL [Suspect]
     Active Substance: GLYCOPYRRONIUM\INDACATEROL
     Indication: Product used for unknown indication
  65. UMECLIDINIUM BROMIDE [Suspect]
     Active Substance: UMECLIDINIUM BROMIDE
     Indication: Product used for unknown indication
  66. ZENHALE [Suspect]
     Active Substance: FORMOTEROL FUMARATE\MOMETASONE FUROATE
  67. ATOVAQUONE W/PROGUANI [Concomitant]
  68. BENADRYL [Concomitant]
     Active Substance: DIPHENHYDRAMINE HYDROCHLORIDE
     Indication: Product used for unknown indication
  69. BISACODYL [Concomitant]
     Active Substance: BISACODYL
  70. ACRIVASTINE [Concomitant]
     Active Substance: ACRIVASTINE
  71. ENFUVIRTIDE [Concomitant]
     Active Substance: ENFUVIRTIDE
     Indication: Product used for unknown indication
  72. LAMIVUDINE [Concomitant]
     Active Substance: LAMIVUDINE
  73. ABACAVIR [Concomitant]
     Active Substance: ABACAVIR
  74. CALCIUM CARBONATE [Concomitant]
     Active Substance: CALCIUM CARBONATE
  75. CHLORAL HYDRATE [Concomitant]
     Active Substance: CHLORAL HYDRATE
  76. IMODIUM [Concomitant]
     Active Substance: LOPERAMIDE HYDROCHLORIDE
  77. LACTULOSE [Concomitant]
     Active Substance: LACTULOSE
  78. LITHIUM [Concomitant]
     Active Substance: LITHIUM
  79. NYSTATIN [Concomitant]
     Active Substance: NYSTATIN
  80. SERTRALINE [Concomitant]
     Active Substance: SERTRALINE HYDROCHLORIDE
  81. ENFUVIRTIDE [Concomitant]
     Active Substance: ENFUVIRTIDE
  82. ATOVAQUONE\PROGUANIL HYDROCHLORIDE [Concomitant]
     Active Substance: ATOVAQUONE\PROGUANIL HYDROCHLORIDE
     Indication: Product used for unknown indication
  83. FUZEON [Concomitant]
     Active Substance: ENFUVIRTIDE
  84. MEGA VIM [Concomitant]
  85. TEVA ATOVAQUIONE PROGUANIL [Concomitant]

REACTIONS (24)
  - Asthma-chronic obstructive pulmonary disease overlap syndrome [Unknown]
  - Blood bilirubin increased [Unknown]
  - Bronchiectasis [Unknown]
  - Cardiac murmur [Unknown]
  - Cholelithiasis [Unknown]
  - Chronic obstructive pulmonary disease [Unknown]
  - Condition aggravated [Unknown]
  - Gastrooesophageal reflux disease [Unknown]
  - Hepatic enzyme increased [Unknown]
  - Hepatotoxicity [Unknown]
  - Hypomania [Unknown]
  - Jaundice cholestatic [Unknown]
  - Lung neoplasm malignant [Unknown]
  - Nasal polyps [Unknown]
  - Nausea [Unknown]
  - Oedema peripheral [Unknown]
  - Pneumonia [Unknown]
  - Psychotic disorder [Unknown]
  - Rhinitis allergic [Unknown]
  - Sarcoidosis [Unknown]
  - Schizophrenia [Unknown]
  - Total lung capacity increased [Unknown]
  - Vomiting [Unknown]
  - Wheezing [Unknown]
